FAERS Safety Report 4450887-1 (Version None)
Quarter: 2004Q3

REPORT INFORMATION
  Report Type: 
  Country: None (occurrence: None)
  Receive Date: 20040916
  Receipt Date: 20020102
  Transmission Date: 20050211
  Serious: Yes (Other)
  Sender: FDA-Public Use
  Company Number: US-BRISTOL-MYERS SQUIBB COMPANY-11713690

PATIENT
  Age: 36 Year
  Sex: Female

DRUGS (10)
  1. STADOL [Suspect]
     Indication: MIGRAINE
     Route: 045
     Dates: start: 19950801
  2. STADOL [Suspect]
     Dosage: ROUTE OF ADMINISTRATION: INJECTION
     Dates: start: 19910101
  3. PROMETHAZINE [Concomitant]
  4. DEPAKOTE [Concomitant]
  5. METHOCARBAMOL [Concomitant]
  6. ULTRAM [Concomitant]
  7. CARISOPRODOL [Concomitant]
  8. NAPROXEN [Concomitant]
  9. HYDROCODONE + ACETAMINOPHEN [Concomitant]
  10. TEMAZEPAM [Concomitant]

REACTIONS (1)
  - DEPENDENCE [None]
